FAERS Safety Report 7766582-7 (Version None)
Quarter: 2011Q3

REPORT INFORMATION
  Report Type: 
  Country: None (occurrence: None)
  Receive Date: 20110922
  Receipt Date: 20110909
  Transmission Date: 20111222
  Serious: Yes (Other)
  Sender: FDA-Public Use
  Company Number: NL-RANBAXY-2011R1-47926

PATIENT

DRUGS (3)
  1. VINCRISTINE [Interacting]
     Indication: ACUTE LYMPHOCYTIC LEUKAEMIA
     Dosage: 4 WEEKLY DOSES OF 1.5MG/M^2
     Route: 065
  2. FLUCONAZOLE [Suspect]
     Indication: FUNGAL INFECTION
     Dosage: 5 MG/KG ONCE DAILY
     Route: 065
  3. VINCRISTINE [Interacting]
     Dosage: UNK
     Route: 065

REACTIONS (3)
  - CONSTIPATION [None]
  - DRUG INTERACTION [None]
  - NEUROPATHY PERIPHERAL [None]
